FAERS Safety Report 6580160-7 (Version None)
Quarter: 2010Q1

REPORT INFORMATION
  Report Type: 
  Country: None (occurrence: None)
  Receive Date: 20100212
  Receipt Date: 20100202
  Transmission Date: 20100710
  Serious: Yes (Hospitalization)
  Sender: FDA-Public Use
  Company Number: US-ROCHE-683706

PATIENT
  Sex: Female
  Weight: 76.7 kg

DRUGS (18)
  1. BEVACIZUMAB [Suspect]
     Indication: DRUG USE FOR UNKNOWN INDICATION
     Dosage: CYCLE 1
     Route: 042
     Dates: start: 20091019
  2. BEVACIZUMAB [Suspect]
     Dosage: CYCLE 6
     Route: 042
     Dates: start: 20100201
  3. CARBOPLATIN [Suspect]
     Indication: DRUG USE FOR UNKNOWN INDICATION
     Dosage: DOSE: 5 AUC. CYCLE 1
     Route: 042
     Dates: start: 20091019
  4. CARBOPLATIN [Suspect]
     Dosage: DOSE: 5 AUC, CYCLE 6
     Route: 042
     Dates: start: 20100201
  5. PACLITAXEL [Suspect]
     Indication: DRUG USE FOR UNKNOWN INDICATION
     Route: 042
     Dates: start: 20091019
  6. PACLITAXEL [Suspect]
     Dosage: CYCLE 6
     Route: 042
     Dates: start: 20100201
  7. AMLODIPINE [Concomitant]
  8. ATENOLOL [Concomitant]
  9. REGLAN [Concomitant]
     Dosage: DOSE: 10 MG QID X3DAYS POST CHEMO.
  10. DECADRON [Concomitant]
     Dosage: DOSE: 4MG BID FOR 3 DAYS POST CHEMO
  11. ATIVAN [Concomitant]
     Dosage: DOSE: I MG EVERY 6 HOURS PRN
  12. POTASSIUM [Concomitant]
  13. MIRALAX [Concomitant]
     Dosage: DOSE: DAILY.
  14. SENNA [Concomitant]
     Dosage: DOSE: SENNA 1 TAB
  15. DOCUSATE [Concomitant]
     Route: 048
  16. DULCOLAX [Concomitant]
     Dosage: DOSE: 10 MG PRN
  17. GABAPENTIN [Concomitant]
     Dosage: DOSE: 400 MG 2 CAPSULES Q 6 HOURS.
  18. DILAUDID [Concomitant]
     Dosage: DOSE: 8 MG TAB Q 3 HOUR PRN.

REACTIONS (8)
  - DEPRESSED LEVEL OF CONSCIOUSNESS [None]
  - NAUSEA [None]
  - OVERDOSE [None]
  - PAIN [None]
  - PAIN IN EXTREMITY [None]
  - PULMONARY EMBOLISM [None]
  - SCIATICA [None]
  - VOMITING [None]
